FAERS Safety Report 6023288-2 (Version None)
Quarter: 2008Q4

REPORT INFORMATION
  Report Type: 
  Country: None (occurrence: None)
  Receive Date: 20081223
  Receipt Date: 20081210
  Transmission Date: 20090506
  Serious: Yes (Other)
  Sender: FDA-Public Use
  Company Number: DSA_32927_2008

PATIENT

DRUGS (3)
  1. WYPAX (WYPAX -LORAZEPAM) (NOT SPECIFIED) [Suspect]
     Indication: SCHIZOPHRENIA
     Dosage: (2 MG TID TRANSPLACENTAL)
     Route: 064
  2. FLUPHENAZINE [Concomitant]
  3. AKINETON [Concomitant]

REACTIONS (3)
  - DRUG EXPOSURE DURING PREGNANCY [None]
  - DRUG WITHDRAWAL SYNDROME NEONATAL [None]
  - NEONATAL ASPHYXIA [None]
